FAERS Safety Report 10310906 (Version 1)
Quarter: 2014Q3

REPORT INFORMATION
  Report Type: Spontaneous
  Country: US (occurrence: None)
  Receive Date: 20140716
  Receipt Date: 20140716
  Transmission Date: 20150326
  Serious: Yes (Life-Threatening, Hospitalization)
  Sender: FDA-Public Use
  Company Number: None

PATIENT
  Age: 2 Year
  Sex: Male
  Weight: 12.9 kg

DRUGS (2)
  1. SEVOFLURANE. [Suspect]
     Active Substance: SEVOFLURANE
     Indication: ANAESTHESIA
  2. FENTANYL. [Concomitant]
     Active Substance: FENTANYL

REACTIONS (2)
  - Body temperature increased [None]
  - Hyperthermia malignant [None]

NARRATIVE: CASE EVENT DATE: 20140714
